FAERS Safety Report 5811464-0 (Version None)
Quarter: 2008Q3

REPORT INFORMATION
  Report Type: 
  Country: None (occurrence: None)
  Receive Date: 20080716
  Receipt Date: 20080711
  Transmission Date: 20090109
  Serious: No
  Sender: FDA-Public Use
  Company Number: US-EISAI MEDICAL RESEARCH-E2090-00505-SOL-US

PATIENT
  Age: 34 Year
  Sex: Female

DRUGS (5)
  1. ZONEGRAN [Suspect]
     Indication: DRUG USE FOR UNKNOWN INDICATION
     Route: 048
     Dates: end: 20070701
  2. ZONEGRAN [Suspect]
     Route: 048
     Dates: start: 20070701
  3. ZONEGRAN [Suspect]
     Route: 048
     Dates: end: 20080301
  4. ZONEGRAN [Suspect]
     Route: 048
     Dates: start: 20080301
  5. LAMICTAL [Suspect]
     Indication: DRUG USE FOR UNKNOWN INDICATION
     Route: 048
     Dates: end: 20070710

REACTIONS (3)
  - DRUG EXPOSURE DURING PREGNANCY [None]
  - INTRA-UTERINE DEATH [None]
  - PREMATURE SEPARATION OF PLACENTA [None]
